FAERS Safety Report 16959501 (Version 5)
Quarter: 2020Q1

REPORT INFORMATION
  Report Type: Spontaneous
  Country: US (occurrence: US)
  Receive Date: 20191025
  Receipt Date: 20200302
  Transmission Date: 20200409
  Serious: Yes (Other)
  Sender: FDA-Public Use
  Company Number: US-BRISTOL-MYERS SQUIBB COMPANY-BMS-2019-102496

PATIENT
  Sex: Male
  Weight: 72.57 kg

DRUGS (1)
  1. ELIQUIS [Suspect]
     Active Substance: APIXABAN
     Indication: PULMONARY EMBOLISM
     Dosage: UNK UNK, BID
     Route: 048

REACTIONS (8)
  - Impaired healing [Unknown]
  - Wound [Unknown]
  - Muscle tightness [Unknown]
  - Face injury [Unknown]
  - Pulmonary embolism [Unknown]
  - Skin discolouration [Unknown]
  - Muscle spasms [Unknown]
  - Musculoskeletal stiffness [Unknown]
